FAERS Safety Report 8037379-8 (Version None)
Quarter: 2012Q1

REPORT INFORMATION
  Report Type: 
  Country: None (occurrence: None)
  Receive Date: 20120111
  Receipt Date: 20120109
  Transmission Date: 20120608
  Serious: No
  Sender: FDA-Public Use
  Company Number: US-TEVA-316662USA

PATIENT
  Sex: Male
  Weight: 99.88 kg

DRUGS (6)
  1. COPAXONE [Suspect]
     Indication: MULTIPLE SCLEROSIS
     Dosage: 20 MILLIGRAM;
     Route: 058
     Dates: start: 20111004
  2. TRAMADOL HCL [Concomitant]
  3. TIZANIDINE HCL [Concomitant]
  4. UNSPECIFIED DIABETES MEDICATION [Concomitant]
  5. UNSPECIFIED HYPERTENSION MEDICATION [Concomitant]
  6. BACLOFEN [Concomitant]

REACTIONS (4)
  - VISUAL IMPAIRMENT [None]
  - HYPERACUSIS [None]
  - AFFECT LABILITY [None]
  - DRUG INEFFECTIVE [None]
